FAERS Safety Report 6618055-2 (Version None)
Quarter: 2010Q1

REPORT INFORMATION
  Report Type: 
  Country: None (occurrence: None)
  Receive Date: 20100308
  Receipt Date: 20100302
  Transmission Date: 20100710
  Serious: Yes (Hospitalization)
  Sender: FDA-Public Use
  Company Number: KR-BAYER-201017744GPV

PATIENT
  Age: 42 Year
  Sex: Male
  Weight: 62 kg

DRUGS (16)
  1. SORAFENIB [Suspect]
     Indication: HEPATIC NEOPLASM MALIGNANT
     Dosage: TOTAL DAILY DOSE: 800 MG
     Route: 048
     Dates: start: 20100122, end: 20100219
  2. SORAFENIB [Suspect]
     Dosage: TOTAL DAILY DOSE: 400 MG
     Route: 048
     Dates: start: 20100219, end: 20100226
  3. ERLOTINIB OR PLACEBO [Suspect]
     Indication: HEPATIC NEOPLASM MALIGNANT
     Route: 048
     Dates: start: 20100211, end: 20100226
  4. ERLOTINIB OR PLACEBO [Suspect]
     Route: 048
     Dates: start: 20100122, end: 20100210
  5. ERLOTINIB OR PLACEBO [Suspect]
     Route: 048
     Dates: start: 20100226
  6. FENTANYL [Concomitant]
     Indication: ABDOMINAL PAIN
     Route: 062
     Dates: start: 20091210
  7. BEECOM [Concomitant]
     Indication: VITAMIN SUPPLEMENTATION
     Route: 048
     Dates: start: 20091230
  8. HEXAMEDIN [Concomitant]
     Indication: STERILISATION
     Dates: start: 20100122
  9. HYDROSON [Concomitant]
     Indication: PALMAR-PLANTAR ERYTHRODYSAESTHESIA SYNDROME
     Route: 061
     Dates: start: 20100122
  10. JEFFIX [Concomitant]
     Indication: HEPATITIS
     Route: 048
     Dates: start: 20100115
  11. LOPERAMIDE [Concomitant]
     Indication: DIARRHOEA
     Route: 048
     Dates: start: 20100122
  12. SILYMARIN [Concomitant]
     Indication: HEPATITIS
     Route: 048
     Dates: start: 20091207
  13. URSA [Concomitant]
     Indication: HEPATITIS
     Route: 048
     Dates: start: 20091207
  14. SACCHAROMYCES [Concomitant]
     Indication: DIARRHOEA
     Route: 048
     Dates: start: 20100210, end: 20100219
  15. FURIX [Concomitant]
     Indication: ASCITES
     Route: 048
     Dates: start: 20100219, end: 20100226
  16. FURIX [Concomitant]
     Route: 048
     Dates: start: 20100226

REACTIONS (1)
  - ASCITES [None]
